FAERS Safety Report 6566584-2 (Version None)
Quarter: 2010Q1

REPORT INFORMATION
  Report Type: 
  Country: None (occurrence: None)
  Receive Date: 20100129
  Receipt Date: 20090512
  Transmission Date: 20100710
  Serious: Yes (Other)
  Sender: FDA-Public Use
  Company Number: 2009BH008406

PATIENT
  Age: 68 Year
  Sex: Male

DRUGS (7)
  1. DIANEAL [Suspect]
     Indication: RENAL FAILURE CHRONIC
     Dosage: 11 L' EVERY DAY; IP
     Route: 033
     Dates: start: 20080304
  2. DIANEAL [Suspect]
     Indication: RENAL FAILURE CHRONIC
     Dosage: 2 L; EVERY DAY; IP
     Route: 033
     Dates: start: 20080304
  3. IRON [Concomitant]
  4. NEPHROCAPS [Concomitant]
  5. PHOSLO [Concomitant]
  6. SEVELAMER [Concomitant]
  7. GENTAMICIN [Concomitant]

REACTIONS (2)
  - PERITONEAL DIALYSIS COMPLICATION [None]
  - PERITONITIS BACTERIAL [None]
